FAERS Safety Report 15120571 (Version 4)
Quarter: 2018Q4

REPORT INFORMATION
  Report Type: Report from Study
  Country: PL (occurrence: PL)
  Receive Date: 20180709
  Receipt Date: 20181004
  Transmission Date: 20190204
  Serious: Yes (Other)
  Sender: FDA-Public Use
  Company Number: PL-PFIZER INC-2018271978

PATIENT

DRUGS (2)
  1. FLUCONAZOLE. [Suspect]
     Active Substance: FLUCONAZOLE
     Dosage: UNK
  2. HALOPERIDOL. [Interacting]
     Active Substance: HALOPERIDOL
     Indication: CANCER PAIN
     Dosage: UNK

REACTIONS (4)
  - Sedation complication [Unknown]
  - Rhabdomyolysis [Unknown]
  - Akathisia [Unknown]
  - Drug interaction [Unknown]
